FAERS Safety Report 14664419 (Version 3)
Quarter: 2018Q2

REPORT INFORMATION
  Report Type: Spontaneous
  Country: US (occurrence: US)
  Receive Date: 20180321
  Receipt Date: 20180531
  Transmission Date: 20180711
  Serious: Yes (Other)
  Sender: FDA-Public Use
  Company Number: US-NOVOPROD-590832

PATIENT
  Age: 46 Year
  Sex: Male

DRUGS (2)
  1. LEVEMIR [Suspect]
     Active Substance: INSULIN DETEMIR
     Indication: TYPE 1 DIABETES MELLITUS
     Dosage: 30 U, QD AT BEDTIME
     Route: 058
  2. NOVOLOG [Suspect]
     Active Substance: INSULIN ASPART
     Indication: TYPE 1 DIABETES MELLITUS
     Dosage: 9 U, WITH EACH MEAL
     Route: 058
     Dates: start: 2011

REACTIONS (5)
  - Injection site reaction [Not Recovered/Not Resolved]
  - Vitiligo [Not Recovered/Not Resolved]
  - Cataract [Not Recovered/Not Resolved]
  - Body tinea [Unknown]
  - Peripheral swelling [Not Recovered/Not Resolved]

NARRATIVE: CASE EVENT DATE: 2011
